FAERS Safety Report 5324296-7 (Version None)
Quarter: 2007Q2

REPORT INFORMATION
  Report Type: 
  Country: None (occurrence: None)
  Receive Date: 20070514
  Receipt Date: 20070509
  Transmission Date: 20071010
  Serious: Yes (Hospitalization)
  Sender: FDA-Public Use
  Company Number: US-ROXANE LABORATORIES, INC-2007-BP-06377RO

PATIENT
  Age: 15 Year
  Sex: Male
  Weight: 42 kg

DRUGS (7)
  1. DIGOXIN [Suspect]
     Indication: CARDIAC FAILURE
     Dosage: 0.25 MG/DAY X 15 DAYS
     Route: 048
  2. DIGOXIN [Suspect]
     Indication: PULMONARY HYPERTENSION
  3. DIGOXIN [Suspect]
     Indication: PLEURAL EFFUSION
  4. SPIRONOLACTONE [Concomitant]
     Route: 048
  5. SILDENAFIL CITRATE [Concomitant]
     Route: 048
  6. ENALAPRIL [Concomitant]
     Route: 048
  7. NIFEDIPINE [Concomitant]
     Route: 048

REACTIONS (10)
  - ATRIOVENTRICULAR BLOCK SECOND DEGREE [None]
  - BRADYCARDIA [None]
  - CARDIOMEGALY [None]
  - HEADACHE [None]
  - NAUSEA [None]
  - PLEURAL EFFUSION [None]
  - SCOTOMA [None]
  - THERAPEUTIC AGENT TOXICITY [None]
  - VENTRICULAR EXTRASYSTOLES [None]
  - VOMITING [None]
